FAERS Safety Report 5134472-4 (Version None)
Quarter: 2006Q4

REPORT INFORMATION
  Report Type: 
  Country: None (occurrence: None)
  Receive Date: 20061025
  Receipt Date: 20061016
  Transmission Date: 20070319
  Serious: Yes (Hospitalization)
  Sender: FDA-Public Use
  Company Number: PR-AMGEN-STX197154

PATIENT
  Sex: Female

DRUGS (2)
  1. ENBREL [Suspect]
     Indication: RHEUMATOID ARTHRITIS
     Route: 058
     Dates: start: 20031216
  2. ARAVA [Concomitant]
     Route: 065
     Dates: start: 20030101

REACTIONS (5)
  - CONVULSION [None]
  - HYPERSENSITIVITY [None]
  - NODULE [None]
  - PLASTIC SURGERY [None]
  - SUBDURAL HAEMATOMA [None]
